FAERS Safety Report 5933169-8 (Version None)
Quarter: 2008Q4

REPORT INFORMATION
  Report Type: 
  Country: None (occurrence: None)
  Receive Date: 20081023
  Receipt Date: 20060529
  Transmission Date: 20090506
  Serious: Yes (Death, Hospitalization, Other)
  Sender: FDA-Public Use
  Company Number: 2006AL002044

PATIENT
  Age: 81 Year
  Sex: Female

DRUGS (6)
  1. IBUPROFEN TABLETS [Suspect]
     Indication: PAIN IN EXTREMITY
  2. DICLOFENAC SODIUM [Suspect]
     Indication: PAIN IN EXTREMITY
  3. CITALOPRAM [Concomitant]
  4. ANASTROZOLE [Concomitant]
  5. LORMETAZEPAM [Concomitant]
  6. TRIMETHOPRIM [Concomitant]

REACTIONS (4)
  - ASTHENIA [None]
  - GASTROINTESTINAL HAEMORRHAGE [None]
  - LETHARGY [None]
  - MYOCARDIAL INFARCTION [None]
